FAERS Safety Report 18677837 (Version 4)
Quarter: 2023Q1

REPORT INFORMATION
  Report Type: Spontaneous
  Country: US (occurrence: US)
  Receive Date: 20201229
  Receipt Date: 20230112
  Transmission Date: 20230417
  Serious: No
  Sender: FDA-Public Use
  Company Number: US-PFIZER INC-2020513628

PATIENT
  Age: 71 Year
  Sex: Female

DRUGS (1)
  1. VYNDAMAX [Suspect]
     Active Substance: TAFAMIDIS
     Indication: Amyloidosis
     Dosage: 61 MG

REACTIONS (3)
  - Off label use [Unknown]
  - Wrong technique in product usage process [Unknown]
  - Dysphagia [Unknown]
